FAERS Safety Report 11724133 (Version 1)
Quarter: 2015Q4

REPORT INFORMATION
  Report Type: Spontaneous
  Country: US (occurrence: US)
  Receive Date: 20151111
  Receipt Date: 20151111
  Transmission Date: 20160304
  Serious: No
  Sender: FDA-Public Use
  Company Number: US-AMNEAL PHARMACEUTICALS-2015AMN00104

PATIENT
  Sex: Male

DRUGS (2)
  1. FELBAMATE. [Suspect]
     Active Substance: FELBAMATE
  2. FELBAMATE. [Suspect]
     Active Substance: FELBAMATE

REACTIONS (1)
  - Drug ineffective [Unknown]
